FAERS Safety Report 6731403-8 (Version None)
Quarter: 2010Q2

REPORT INFORMATION
  Report Type: 
  Country: None (occurrence: None)
  Receive Date: 20100518
  Receipt Date: 20100518
  Transmission Date: 20101027
  Serious: Yes (Hospitalization)
  Sender: FDA-Public Use
  Company Number: None

PATIENT
  Age: 51 Year
  Sex: Male
  Weight: 98.4 kg

DRUGS (2)
  1. LITHIUM CARBONATE [Suspect]
     Indication: BIPOLAR I DISORDER
     Dosage: 300 MG TID PO
     Route: 048
     Dates: start: 20091218, end: 20100324
  2. LITHIUM CARBONATE [Suspect]
     Indication: SUICIDAL IDEATION
     Dosage: 300 MG TID PO
     Route: 048
     Dates: start: 20091218, end: 20100324

REACTIONS (10)
  - ASTHENIA [None]
  - DELIRIUM [None]
  - DEPRESSION [None]
  - DIARRHOEA [None]
  - HAEMODIALYSIS [None]
  - HYPOTENSION [None]
  - LEUKOCYTOSIS [None]
  - RENAL FAILURE ACUTE [None]
  - THERAPEUTIC AGENT TOXICITY [None]
  - TREMOR [None]
